FAERS Safety Report 5756713-2 (Version None)
Quarter: 2008Q2

REPORT INFORMATION
  Report Type: 
  Country: None (occurrence: None)
  Receive Date: 20080603
  Receipt Date: 20080523
  Transmission Date: 20081010
  Serious: Yes (Hospitalization)
  Sender: FDA-Public Use
  Company Number: FR-TEVA-171999ISR

PATIENT
  Sex: Female
  Weight: 70 kg

DRUGS (2)
  1. METHOTREXATE [Suspect]
     Indication: ECTOPIC PREGNANCY
     Route: 030
     Dates: start: 20080213, end: 20080213
  2. METHOTREXATE [Suspect]
     Route: 030
     Dates: start: 20080217, end: 20080217

REACTIONS (4)
  - BLOOD PRESSURE DECREASED [None]
  - DRUG INEFFECTIVE [None]
  - HEPATITIS [None]
  - NAUSEA [None]
